FAERS Safety Report 20566901 (Version 1)
Quarter: 2022Q1

REPORT INFORMATION
  Report Type: Spontaneous
  Country: CN (occurrence: CN)
  Receive Date: 20220308
  Receipt Date: 20220308
  Transmission Date: 20220423
  Serious: Yes (Other)
  Sender: FDA-Public Use
  Company Number: CN-Merck Healthcare KGaA-9302812

PATIENT
  Sex: Male

DRUGS (16)
  1. ERBITUX [Suspect]
     Active Substance: CETUXIMAB
     Indication: Colon cancer metastatic
     Dosage: 600 MG, DAILY, 8 CYCLES, 3 WEEKS PER CYCLE
     Route: 065
     Dates: start: 201712, end: 201807
  2. ERBITUX [Suspect]
     Active Substance: CETUXIMAB
     Dosage: 800 MG, WEEKLY (1/W), 24 CYCLES
     Route: 065
     Dates: start: 201807, end: 202001
  3. ERBITUX [Suspect]
     Active Substance: CETUXIMAB
     Dosage: 800 MG, UNKNOWN
     Route: 065
     Dates: start: 202005, end: 202006
  4. ERBITUX [Suspect]
     Active Substance: CETUXIMAB
     Dosage: UNK UNK, UNKNOWN
     Route: 065
     Dates: start: 202010
  5. OXALIPLATIN [Concomitant]
     Active Substance: OXALIPLATIN
     Indication: Colon cancer metastatic
     Dosage: 130 MG, DAILY, 8 CYCLES, 3 WEEKS PER CYCLE
     Dates: start: 201712, end: 201807
  6. CAPECITABINE [Concomitant]
     Active Substance: CAPECITABINE
     Indication: Colon cancer metastatic
     Dosage: 1000 MG/M2, DAILY, 8 CYCLES, 3 WEEKS PER CYCLE
     Dates: start: 201712, end: 201807
  7. CAPECITABINE [Concomitant]
     Active Substance: CAPECITABINE
     Dosage: 800 MG, MONTHLY (1/M)
     Dates: start: 202006, end: 202010
  8. IRINOTECAN [Concomitant]
     Active Substance: IRINOTECAN
     Indication: Colon cancer metastatic
     Dosage: UNK, WEEKLY (1/W), 24 CYCLES
     Dates: start: 201807, end: 202001
  9. IRINOTECAN [Concomitant]
     Active Substance: IRINOTECAN
     Dosage: 280 MG/DL
     Dates: start: 202005, end: 202006
  10. IRINOTECAN [Concomitant]
     Active Substance: IRINOTECAN
     Dosage: UNK
     Dates: start: 202010
  11. LEUCOVORIN CALCIUM [Concomitant]
     Active Substance: LEUCOVORIN CALCIUM
     Indication: Colon cancer metastatic
     Dosage: UNK, WEEKLY (1/W), 24 CYCLES
     Dates: start: 201807, end: 202001
  12. LEUCOVORIN CALCIUM [Concomitant]
     Active Substance: LEUCOVORIN CALCIUM
     Dosage: 1000 MG/DL
     Dates: start: 202005, end: 202006
  13. LEUCOVORIN CALCIUM [Concomitant]
     Active Substance: LEUCOVORIN CALCIUM
     Dosage: UNK, UNKNOWN
     Dates: start: 202010
  14. FLUOROURACIL [Concomitant]
     Active Substance: FLUOROURACIL
     Indication: Colon cancer metastatic
     Dosage: UNK, WEEKLY (1/W), 24 CYCLES
     Dates: start: 201807, end: 202001
  15. FLUOROURACIL [Concomitant]
     Active Substance: FLUOROURACIL
     Dosage: 4 G, UNK
     Dates: start: 202005, end: 202006
  16. FLUOROURACIL [Concomitant]
     Active Substance: FLUOROURACIL
     Dosage: UNK
     Dates: start: 202010

REACTIONS (2)
  - Myelosuppression [Recovered/Resolved]
  - Off label use [Unknown]

NARRATIVE: CASE EVENT DATE: 20200101
